FAERS Safety Report 8592314-9 (Version None)
Quarter: 2012Q3

REPORT INFORMATION
  Report Type: 
  Country: None (occurrence: None)
  Receive Date: 20120814
  Receipt Date: 20120808
  Transmission Date: 20120928
  Serious: Yes (Other)
  Sender: FDA-Public Use
  Company Number: JP-JNJFOC-20120703705

PATIENT
  Sex: Female
  Weight: 82 kg

DRUGS (11)
  1. SELBEX [Concomitant]
     Indication: GASTRITIS
     Route: 048
     Dates: start: 20100127
  2. AMLODIPINE [Concomitant]
     Indication: HYPERTENSION
     Route: 048
     Dates: start: 20110901
  3. LOXONIN [Concomitant]
     Indication: PAIN
     Route: 048
     Dates: start: 20100127
  4. SIMPONI [Suspect]
     Indication: RHEUMATOID ARTHRITIS
     Route: 058
     Dates: start: 20111221
  5. ALPRAZOLAM [Concomitant]
     Indication: INSOMNIA
     Route: 048
     Dates: start: 20110615
  6. MAGLAX [Concomitant]
     Indication: CONSTIPATION
     Route: 048
     Dates: start: 20110427
  7. MERISLON [Concomitant]
     Indication: DIZZINESS
     Route: 048
     Dates: start: 20110615
  8. PITAVASTATIN CALCIUM [Concomitant]
     Indication: HYPERCHOLESTEROLAEMIA
     Route: 048
     Dates: start: 20111005, end: 20120125
  9. ADENOSINE [Concomitant]
     Indication: DIZZINESS
     Route: 048
     Dates: start: 20100521
  10. SIMPONI [Suspect]
     Route: 058
     Dates: start: 20111124
  11. WARFARIN POTASSIUM [Concomitant]
     Indication: THROMBOPHLEBITIS
     Route: 048
     Dates: start: 20100421

REACTIONS (4)
  - C-REACTIVE PROTEIN INCREASED [None]
  - MALAISE [None]
  - PAIN IN EXTREMITY [None]
  - PARAESTHESIA [None]
